FAERS Safety Report 5022307-X (Version None)
Quarter: 2006Q2

REPORT INFORMATION
  Report Type: 
  Country: None (occurrence: None)
  Receive Date: 20060609
  Receipt Date: 20060608
  Transmission Date: 20061013
  Serious: Yes (Hospitalization)
  Sender: FDA-Public Use
  Company Number: FR-GLAXOSMITHKLINE-B0426802A

PATIENT
  Age: 44 Year
  Sex: Female

DRUGS (3)
  1. AUGMENTIN '125' [Suspect]
     Indication: ANTIBIOTIC PROPHYLAXIS
     Dosage: 2G PER DAY
     Route: 048
     Dates: start: 20060422, end: 20060422
  2. CYTOTEC [Suspect]
     Indication: UTERINE CONTRACTIONS DURING PREGNANCY
     Dosage: 5UNIT PER DAY
     Route: 014
     Dates: start: 20060422, end: 20060422
  3. SYNTOCINON [Concomitant]
     Indication: UTERINE CONTRACTIONS DURING PREGNANCY
     Route: 042
     Dates: start: 20060422, end: 20060422

REACTIONS (8)
  - ANAPHYLACTIC SHOCK [None]
  - BLOOD PRESSURE DECREASED [None]
  - DERMATITIS BULLOUS [None]
  - DIZZINESS [None]
  - LETHARGY [None]
  - OEDEMA [None]
  - PRURITUS [None]
  - VOMITING [None]
